FAERS Safety Report 19841871 (Version 2)
Quarter: 2022Q2

REPORT INFORMATION
  Report Type: Spontaneous
  Country: US (occurrence: None)
  Receive Date: 20210916
  Receipt Date: 20220405
  Transmission Date: 20220721
  Serious: Yes (Other)
  Sender: FDA-Public Use
  Company Number: 2021A723365

PATIENT
  Age: 71 Year
  Sex: Male
  Weight: 77.1 kg

DRUGS (43)
  1. NEXIUM [Suspect]
     Active Substance: ESOMEPRAZOLE MAGNESIUM
     Indication: Gastrooesophageal reflux disease
     Dosage: FOR VARIOUS DATES AND YEARS
     Route: 048
  2. NEXIUM [Suspect]
     Active Substance: ESOMEPRAZOLE MAGNESIUM
     Indication: Gastrooesophageal reflux disease
     Route: 048
     Dates: start: 2014, end: 2016
  3. NEXIUM [Suspect]
     Active Substance: ESOMEPRAZOLE MAGNESIUM
     Indication: Gastrooesophageal reflux disease
     Dosage: GENERIC
     Route: 065
     Dates: start: 2015, end: 2019
  4. FUROSEMIDE [Concomitant]
     Active Substance: FUROSEMIDE
     Indication: Gastrooesophageal reflux disease
     Dates: start: 2010
  5. FUROSEMIDE [Concomitant]
     Active Substance: FUROSEMIDE
     Indication: Gastrooesophageal reflux disease
     Dates: start: 2017, end: 2018
  6. AMOXICILLIN [Concomitant]
     Active Substance: AMOXICILLIN
     Indication: Infection
     Dates: start: 2010
  7. ALLOPURINOL [Concomitant]
     Active Substance: ALLOPURINOL
     Indication: Blood uric acid
     Dates: start: 2010, end: 2011
  8. ALLOPURINOL [Concomitant]
     Active Substance: ALLOPURINOL
     Indication: Blood uric acid
     Dates: start: 2014, end: 2017
  9. LISINOPRIL [Concomitant]
     Active Substance: LISINOPRIL
     Indication: Cardiac failure
     Dates: start: 2011
  10. HYDROCHLOROTHIAZIDE [Concomitant]
     Active Substance: HYDROCHLOROTHIAZIDE
     Indication: Blood uric acid
     Dates: start: 2011, end: 2012
  11. HYDROCHLOROTHIAZIDE [Concomitant]
     Active Substance: HYDROCHLOROTHIAZIDE
     Indication: Blood uric acid
     Dates: start: 2014, end: 2017
  12. SIMVASTATIN [Concomitant]
     Active Substance: SIMVASTATIN
     Indication: Blood cholesterol
     Dates: start: 2011
  13. SIMVASTATIN [Concomitant]
     Active Substance: SIMVASTATIN
     Indication: Blood cholesterol
     Dates: start: 2014, end: 2015
  14. SIMVASTATIN [Concomitant]
     Active Substance: SIMVASTATIN
     Indication: Blood cholesterol
     Dates: start: 2018, end: 2019
  15. LOSARTAN [Concomitant]
     Active Substance: LOSARTAN
     Indication: Blood cholesterol
     Dates: start: 2012
  16. LOSARTAN [Concomitant]
     Active Substance: LOSARTAN
     Indication: Blood cholesterol
     Dates: start: 2014, end: 2017
  17. CIPROFLOXACIN [Concomitant]
     Active Substance: CIPROFLOXACIN
     Indication: Infection
     Dates: start: 2019
  18. POTASSIUM [Concomitant]
     Active Substance: POTASSIUM
     Indication: Hypokalaemia
     Dates: start: 2010
  19. VITAMINS [Concomitant]
     Active Substance: VITAMINS
     Indication: Multi-vitamin deficiency
     Dates: start: 2018
  20. ZANTAC [Concomitant]
     Active Substance: RANITIDINE HYDROCHLORIDE
     Dates: start: 2010
  21. RANITIDINE [Concomitant]
     Active Substance: RANITIDINE
     Dates: start: 2010
  22. CARVEDILOL [Concomitant]
     Active Substance: CARVEDILOL
  23. METFORMIN [Concomitant]
     Active Substance: METFORMIN HYDROCHLORIDE
  24. LYRICA [Concomitant]
     Active Substance: PREGABALIN
  25. LEVEMIR [Concomitant]
     Active Substance: INSULIN DETEMIR
  26. MELOXICAM [Concomitant]
     Active Substance: MELOXICAM
  27. TRIBENZOR [Concomitant]
     Active Substance: AMLODIPINE BESYLATE\HYDROCHLOROTHIAZIDE\OLMESARTAN MEDOXOMIL
  28. METHOCARBAMOL [Concomitant]
     Active Substance: METHOCARBAMOL
  29. ULORIC [Concomitant]
     Active Substance: FEBUXOSTAT
  30. PAROXETINE [Concomitant]
     Active Substance: PAROXETINE
  31. METHADONE [Concomitant]
     Active Substance: METHADONE HYDROCHLORIDE
  32. AMLODIPINE [Concomitant]
     Active Substance: AMLODIPINE BESYLATE
  33. CLONIDINE [Concomitant]
     Active Substance: CLONIDINE
  34. POTASSIUM CHLORIDE [Concomitant]
     Active Substance: POTASSIUM CHLORIDE
  35. BISACODYL [Concomitant]
     Active Substance: BISACODYL
  36. PREVNAR [Concomitant]
     Active Substance: PNEUMOCOCCAL 7-VALENT CONJUGATE VACCINE (DIPHTHERIA CRM197 PROTEIN)
  37. DIALYVITE [Concomitant]
     Active Substance: ASCORBIC ACID\BIOTIN\CALCIUM PANTOTHENATE\COBALAMIN\FOLIC ACID\NIACINAMIDE\PYRIDOXINE HYDROCHLORIDE\
  38. COLCHICINE [Concomitant]
     Active Substance: COLCHICINE
  39. SEVELAMER [Concomitant]
     Active Substance: SEVELAMER
  40. KLOR-CON [Concomitant]
     Active Substance: POTASSIUM CHLORIDE
  41. GLIPIZIDE [Concomitant]
     Active Substance: GLIPIZIDE
  42. ENALAPRIL MALEATE [Concomitant]
     Active Substance: ENALAPRIL MALEATE
  43. NAPROXEN [Concomitant]
     Active Substance: NAPROXEN

REACTIONS (7)
  - Chronic kidney disease [Unknown]
  - Renal failure [Unknown]
  - End stage renal disease [Not Recovered/Not Resolved]
  - Acute kidney injury [Not Recovered/Not Resolved]
  - Nephrogenic anaemia [Unknown]
  - Hyperparathyroidism secondary [Unknown]
  - Rebound acid hypersecretion [Unknown]

NARRATIVE: CASE EVENT DATE: 20180101
